FAERS Safety Report 25304820 (Version 2)
Quarter: 2025Q3

REPORT INFORMATION
  Report Type: Spontaneous
  Country: EU (occurrence: EU)
  Receive Date: 20250513
  Receipt Date: 20250714
  Transmission Date: 20251020
  Serious: Yes (Life-Threatening, Hospitalization, Other)
  Sender: CHEPLAPHARM
  Company Number: None

PATIENT
  Age: 47 Year
  Sex: Female
  Weight: 90 kg

DRUGS (13)
  1. QUETIAPINE [Suspect]
     Active Substance: QUETIAPINE
     Indication: Aggression
     Route: 048
     Dates: start: 20111201, end: 20240811
  2. PREDNISONE [Suspect]
     Active Substance: PREDNISONE
     Indication: Eosinophilia
     Dosage: DAILY DOSE: 30 MILLIGRAM
     Dates: start: 202401
  3. PREDNISONE [Suspect]
     Active Substance: PREDNISONE
     Indication: Eosinophilia
     Dosage: DAILY DOSE: 30 MILLIGRAM
  4. ESLICARBAZEPINE ACETATE [Suspect]
     Active Substance: ESLICARBAZEPINE ACETATE
     Indication: Immunotoxicity
     Dosage: 0-0-2?DAILY DOSE: 800 MILLIGRAM
     Route: 048
     Dates: start: 20120401, end: 20230930
  5. ESLICARBAZEPINE ACETATE [Suspect]
     Active Substance: ESLICARBAZEPINE ACETATE
     Indication: Atypical benign partial epilepsy
     Dosage: 0-0-2?DAILY DOSE: 800 MILLIGRAM
     Route: 048
     Dates: start: 20120401, end: 20230930
  6. BRIVIACT [Concomitant]
     Active Substance: BRIVARACETAM
  7. FLUOXETINE [Concomitant]
     Active Substance: FLUOXETINE HYDROCHLORIDE
     Dosage: 20 MG 1-1-0?DAILY DOSE: 40 MILLIGRAM
  8. LORMETAZEPAM [Concomitant]
     Active Substance: LORMETAZEPAM
     Dosage: 2 MG 0-0-1?DAILY DOSE: 2 MILLIGRAM
  9. OMEPRAZOLE [Concomitant]
     Active Substance: OMEPRAZOLE
     Dosage: 20 MG 1-0-0?DAILY DOSE: 20 MILLIGRAM
  10. CLORAZEPATE DIPOTASSIUM [Concomitant]
     Active Substance: CLORAZEPATE DIPOTASSIUM
     Dosage: 5 MG 0-1-1?DAILY DOSE: 10 MILLIGRAM
  11. SERETIDE [Concomitant]
     Active Substance: FLUTICASONE PROPIONATE\SALMETEROL XINAFOATE
     Dosage: 1 INH/12 H?DAILY DOSE: 2 DOSAGE FORM
  12. Ferogradumet [Concomitant]
  13. FOLIC ACID [Concomitant]
     Active Substance: FOLIC ACID

REACTIONS (6)
  - Sideroblastic anaemia [Recovered/Resolved]
  - SARS-CoV-2 test positive [Recovered/Resolved]
  - Aplastic anaemia [Unknown]
  - Reticulocytopenia [Unknown]
  - Eosinophilia [Recovered/Resolved]
  - Off label use [Unknown]

NARRATIVE: CASE EVENT DATE: 20111201
